FAERS Safety Report 9468403 (Version 2)
Quarter: 2013Q4

REPORT INFORMATION
  Report Type: Spontaneous
  Country: GB (occurrence: GB)
  Receive Date: 20130821
  Receipt Date: 20131122
  Transmission Date: 20140711
  Serious: Yes (Life-Threatening, Hospitalization)
  Sender: FDA-Public Use
  Company Number: PHHY2013GB089834

PATIENT
  Age: 69 Year
  Sex: Female

DRUGS (7)
  1. CITALOPRAM [Suspect]
     Indication: DEPRESSION
     Dosage: 10 MG QD
     Route: 048
     Dates: start: 20130301, end: 201304
  2. CITALOPRAM [Suspect]
     Dosage: 20 MG DAILY
     Route: 048
     Dates: start: 201304, end: 201305
  3. CITALOPRAM [Suspect]
     Dosage: 30 MG DAILY
     Route: 048
     Dates: start: 201305, end: 201305
  4. CITALOPRAM [Suspect]
     Dosage: 20 MG
  5. CITALOPRAM [Suspect]
     Dosage: 30 MG
  6. OMEPRAZOLE [Concomitant]
     Route: 048
  7. ACICLOVIR [Concomitant]
     Route: 048

REACTIONS (3)
  - Malaise [Unknown]
  - Erythema multiforme [Recovering/Resolving]
  - Stevens-Johnson syndrome [Recovering/Resolving]
